FAERS Safety Report 21441557 (Version 1)
Quarter: 2022Q4

REPORT INFORMATION
  Report Type: Spontaneous
  Country: US (occurrence: US)
  Receive Date: 20221011
  Receipt Date: 20221011
  Transmission Date: 20230113
  Serious: No
  Sender: FDA-Public Use
  Company Number: US-SANOFI-01305038

PATIENT
  Sex: Female

DRUGS (1)
  1. ALLEGRA [Suspect]
     Active Substance: FEXOFENADINE HYDROCHLORIDE
     Dosage: 2 DF, QD
     Route: 048

REACTIONS (5)
  - Herpes zoster [Unknown]
  - Abdominal pain upper [Unknown]
  - Nerve injury [Unknown]
  - Pruritus [Unknown]
  - Off label use [Unknown]
